FAERS Safety Report 24686880 (Version 5)
Quarter: 2025Q2

REPORT INFORMATION
  Report Type: Spontaneous
  Country: DE (occurrence: DE)
  Receive Date: 20241202
  Receipt Date: 20250409
  Transmission Date: 20250716
  Serious: Yes (Other)
  Sender: UCB
  Company Number: DE-UCBSA-2024062139

PATIENT
  Age: 65 Year
  Sex: Male
  Weight: 92 kg

DRUGS (8)
  1. BIMZELX [Suspect]
     Active Substance: BIMEKIZUMAB-BKZX
     Indication: Psoriasis
     Dates: start: 20221130
  2. PANTOPRAZOLE [Concomitant]
     Active Substance: PANTOPRAZOLE
     Indication: Prophylaxis
     Route: 048
     Dates: start: 20230504
  3. FORMOTEROL [Concomitant]
     Active Substance: FORMOTEROL
     Indication: Asthma
     Dates: start: 20170615
  4. BUDESONIDE [Concomitant]
     Active Substance: BUDESONIDE
     Indication: Asthma
     Dates: start: 20170615
  5. CANDESARTAN [Concomitant]
     Active Substance: CANDESARTAN
     Indication: Hypertonia
     Route: 048
     Dates: start: 20170615
  6. IBUPROFEN [Concomitant]
     Active Substance: IBUPROFEN
     Indication: COVID-19
     Route: 048
     Dates: start: 20220228
  7. DICLOFENAC [Concomitant]
     Active Substance: DICLOFENAC
     Indication: Myalgia
     Dates: start: 20220228
  8. DICLOFENAC [Concomitant]
     Active Substance: DICLOFENAC
     Indication: COVID-19

REACTIONS (4)
  - Prostate cancer [Unknown]
  - Oesophagitis [Recovered/Resolved]
  - Helicobacter infection [Unknown]
  - Therapeutic product effect incomplete [Unknown]

NARRATIVE: CASE EVENT DATE: 20230127
